FAERS Safety Report 9201648 (Version 5)
Quarter: 2016Q3

REPORT INFORMATION
  Report Type: Report from Study
  Country: FR (occurrence: FR)
  Receive Date: 20130401
  Receipt Date: 20160901
  Transmission Date: 20161109
  Serious: Yes (Death, Hospitalization, Disabling)
  Sender: FDA-Public Use
  Company Number: PHHY2013FR030106

PATIENT
  Age: 55 Year
  Sex: Female

DRUGS (4)
  1. TASIGNA [Suspect]
     Active Substance: NILOTINIB
     Indication: CHRONIC MYELOID LEUKAEMIA
     Dosage: 600 MG, DAILY
     Route: 048
     Dates: start: 20111017, end: 20130218
  2. PLAVIX [Concomitant]
     Active Substance: CLOPIDOGREL BISULFATE
     Indication: ARTERIOSCLEROSIS
     Route: 065
  3. TAHOR [Concomitant]
     Active Substance: ATORVASTATIN CALCIUM
     Indication: HYPERCHOLESTEROLAEMIA
     Route: 065
  4. KARDEGIC [Concomitant]
     Active Substance: ASPIRIN LYSINE
     Indication: ARTERIOSCLEROSIS
     Route: 065

REACTIONS (6)
  - Fatigue [Unknown]
  - Weight decreased [Unknown]
  - Amyotrophy [Fatal]
  - Peripheral arterial occlusive disease [Not Recovered/Not Resolved]
  - Pain [Not Recovered/Not Resolved]
  - Myalgia [Not Recovered/Not Resolved]

NARRATIVE: CASE EVENT DATE: 2012
